FAERS Safety Report 14149429 (Version 5)
Quarter: 2018Q4

REPORT INFORMATION
  Report Type: Report from Study
  Country: None (occurrence: IL)
  Receive Date: 20171101
  Receipt Date: 20181128
  Transmission Date: 20190204
  Serious: Yes (Life-Threatening, Hospitalization, Disabling, Other)
  Sender: FDA-Public Use
  Company Number: IL-ABBVIE-17P-082-2147062-00

PATIENT
  Age: 75 Year
  Sex: Male
  Weight: 68 kg

DRUGS (8)
  1. DUODOPA [Suspect]
     Active Substance: CARBIDOPA\LEVODOPA
     Route: 050
     Dates: start: 20161120
  2. DOPICAR [Concomitant]
     Active Substance: CARBIDOPA\LEVODOPA
     Indication: PARKINSON^S DISEASE
     Dosage: QHS
     Route: 048
     Dates: start: 2007
  3. DUODOPA [Suspect]
     Active Substance: CARBIDOPA\LEVODOPA
     Indication: PARKINSON^S DISEASE
     Dosage: TITRATION: DOING AT END OF TITRATION: MD=9 ML, CD=2.2 ML/H, ED=0/D, 16 H
     Route: 050
     Dates: start: 20161114, end: 20161117
  4. SINEMET RETARD [Concomitant]
     Indication: PARKINSON^S DISEASE
     Dosage: QHS
     Route: 048
     Dates: start: 2016
  5. DISOTHIAZIDE [Concomitant]
     Active Substance: HYDROCHLOROTHIAZIDE
     Indication: HYPERTENSION
     Route: 048
     Dates: start: 2010
  6. CIPRALEX [Concomitant]
     Active Substance: ESCITALOPRAM OXALATE
     Indication: DEPRESSION
     Route: 048
     Dates: start: 2015
  7. DOPICAR [Concomitant]
     Active Substance: CARBIDOPA\LEVODOPA
     Dosage: 50/200 MG
     Route: 048
     Dates: start: 20171025, end: 20171025
  8. CARDILOC [Concomitant]
     Active Substance: BISOPROLOL FUMARATE
     Indication: HYPERTENSION
     Route: 048
     Dates: start: 2010

REACTIONS (2)
  - Pneumonia [Recovered/Resolved]
  - Sepsis [Recovered/Resolved]

NARRATIVE: CASE EVENT DATE: 20171024
